FAERS Safety Report 9386770 (Version 3)
Quarter: 2013Q3

REPORT INFORMATION
  Report Type: Spontaneous
  Country: JP (occurrence: JP)
  Receive Date: 20130708
  Receipt Date: 20130807
  Transmission Date: 20140515
  Serious: Yes (Hospitalization, Other)
  Sender: FDA-Public Use
  Company Number: PHHY2013JP071503

PATIENT
  Age: 77 Year
  Sex: Male

DRUGS (9)
  1. EXELON PATCH [Suspect]
     Indication: DEMENTIA ALZHEIMER^S TYPE
     Dosage: 4.5MG, DAILY
     Route: 062
     Dates: start: 20120328, end: 20120425
  2. EXELON PATCH [Suspect]
     Dosage: 9MG, DAILY
     Route: 062
     Dates: start: 20120426, end: 20120523
  3. EXELON PATCH [Suspect]
     Dosage: 13.5 MG, DAILY
     Route: 062
     Dates: start: 20120524, end: 20120619
  4. EXELON PATCH [Suspect]
     Dosage: 18 MG, DAILY
     Route: 062
     Dates: start: 20120620, end: 20130627
  5. MENESIT [Concomitant]
     Indication: PARKINSON^S DISEASE
     Dosage: 2.5 DF, UNK
     Route: 048
     Dates: start: 20090715
  6. DOPS [Concomitant]
     Indication: PARKINSON^S DISEASE
     Dosage: 300 MG, UNK
     Route: 048
     Dates: start: 20090715
  7. EXCEGRAN [Concomitant]
     Indication: PARKINSON^S DISEASE
     Dosage: 0.125 G, UNK
     Route: 048
     Dates: start: 20090715
  8. TAKEPRON [Concomitant]
     Indication: PARKINSON^S DISEASE
     Dosage: 15 MG, UNK
     Route: 048
     Dates: start: 20090715
  9. KAMAG G [Concomitant]
     Indication: PARKINSON^S DISEASE
     Dosage: 2 G, UNK
     Route: 048
     Dates: start: 20090715

REACTIONS (5)
  - Loss of consciousness [Recovered/Resolved]
  - Fracture [Recovering/Resolving]
  - Fall [Recovering/Resolving]
  - Psychomotor seizures [Recovered/Resolved]
  - Orthostatic hypotension [Recovering/Resolving]
